FAERS Safety Report 5144767-6 (Version None)
Quarter: 2006Q4

REPORT INFORMATION
  Report Type: 
  Country: None (occurrence: None)
  Receive Date: 20060912
  Receipt Date: 20060516
  Transmission Date: 20070319
  Serious: Yes (Hospitalization)
  Sender: FDA-Public Use
  Company Number: 1-138668345

PATIENT
  Age: 53 Year
  Sex: Male
  Weight: 97.3 kg

DRUGS (11)
  1. BACTRIM [Suspect]
     Indication: URINARY TRACT INFECTION
     Dosage: UNK, ORAL
     Route: 048
     Dates: start: 20060101, end: 20060209
  2. PROCRIT [Concomitant]
  3. LISINOPRIL [Concomitant]
  4. HYDROCHLOROTHIAZIDE [Concomitant]
  5. COREG [Concomitant]
  6. ZOCOR [Concomitant]
  7. DIOVAN [Concomitant]
  8. VITAMIN B-12 [Concomitant]
  9. FISH OIL [Concomitant]
  10. FOLIC ACID [Concomitant]
  11. SODIUM BICARBONATE [Concomitant]

REACTIONS (5)
  - ANOREXIA [None]
  - FATIGUE [None]
  - NEPHRITIS INTERSTITIAL [None]
  - RENAL FAILURE ACUTE [None]
  - WEIGHT DECREASED [None]
